FAERS Safety Report 4406031-X (Version None)
Quarter: 2004Q3

REPORT INFORMATION
  Report Type: 
  Country: None (occurrence: None)
  Receive Date: 20040723
  Receipt Date: 20040324
  Transmission Date: 20050211
  Serious: No
  Sender: FDA-Public Use
  Company Number: US-GLAXOSMITHKLINE-A0504318A

PATIENT
  Age: 85 Year
  Sex: Male

DRUGS (7)
  1. AVANDIA [Suspect]
     Dosage: 4MG PER DAY
     Route: 048
  2. TOPROL-XL [Concomitant]
  3. GLUCOTROL XL [Concomitant]
  4. CARDURA [Concomitant]
  5. ASPIRIN [Concomitant]
  6. LASIX [Concomitant]
  7. SPIRONOLACTONE [Concomitant]

REACTIONS (3)
  - DYSPNOEA [None]
  - FATIGUE [None]
  - FLUID RETENTION [None]
